FAERS Safety Report 9018256 (Version 1)
Quarter: 2013Q1

REPORT INFORMATION
  Report Type: Spontaneous
  Country: US (occurrence: None)
  Receive Date: 20130111
  Receipt Date: 20130111
  Transmission Date: 20140127
  Serious: Yes (Other)
  Sender: FDA-Public Use
  Company Number: None

PATIENT
  Age: 41 Year
  Sex: Female
  Weight: 76.2 kg

DRUGS (1)
  1. MIRENA IUD BAYER [Suspect]
     Indication: CONTRACEPTION
     Dates: start: 20120820, end: 20130109

REACTIONS (3)
  - Mood swings [None]
  - Irritability [None]
  - Anxiety [None]
